FAERS Safety Report 8624607-0 (Version None)
Quarter: 2012Q3

REPORT INFORMATION
  Report Type: 
  Country: None (occurrence: None)
  Receive Date: 20120827
  Receipt Date: 20120823
  Transmission Date: 20120928
  Serious: Yes (Life-Threatening)
  Sender: FDA-Public Use
  Company Number: GB-PFIZER INC-2012206931

PATIENT
  Age: 73 Year
  Sex: Male
  Weight: 80 kg

DRUGS (2)
  1. ATORVASTATIN [Suspect]
     Indication: HYPERCHOLESTEROLAEMIA
     Dates: start: 20110101
  2. ATENOLOL [Concomitant]
     Indication: HYPERTENSION
     Dosage: 50 MG, UNK

REACTIONS (8)
  - MALAISE [None]
  - MUSCULAR WEAKNESS [None]
  - ASTHENIA [None]
  - COUGH [None]
  - MUSCLE SPASMS [None]
  - ARTHRALGIA [None]
  - MUSCLE FATIGUE [None]
  - OROPHARYNGEAL PAIN [None]
